FAERS Safety Report 4728357-2 (Version None)
Quarter: 2005Q3

REPORT INFORMATION
  Report Type: 
  Country: None (occurrence: None)
  Receive Date: 20050727
  Receipt Date: 20050714
  Transmission Date: 20060218
  Serious: Yes (Other)
  Sender: FDA-Public Use
  Company Number: 2005102542

PATIENT
  Age: 65 Year
  Sex: Male
  Weight: 83.4619 kg

DRUGS (9)
  1. DILANTIN KAPSEAL [Suspect]
     Indication: CONVULSION
     Dosage: 300 MG (100 MG, 3 IN 1 D), ORAL
     Route: 048
  2. MYCILLIN (BENZYLPENICILLIN POTASSIUM, BENZYLPENICILLIN PROCAINE, STREP [Concomitant]
  3. AVALIDE [Concomitant]
  4. HAWTHORN (CRATAEGUS) [Concomitant]
  5. TURMERIC (TURMERIC) [Concomitant]
  6. VITAMINS (VITAMINS) [Concomitant]
  7. GINSENG (GINSENG) [Concomitant]
  8. GRAPE SEED (GRAPE SEED) [Concomitant]
  9. GINKGO BILOBA (GINKGO BILOBA) [Concomitant]

REACTIONS (3)
  - ANTICONVULSANT DRUG LEVEL DECREASED [None]
  - CONDITION AGGRAVATED [None]
  - CONVULSION [None]
